FAERS Safety Report 4310833-8 (Version None)
Quarter: 2004Q1

REPORT INFORMATION
  Report Type: 
  Country: None (occurrence: None)
  Receive Date: 20040302
  Receipt Date: 20040223
  Transmission Date: 20041129
  Serious: Yes (Hospitalization)
  Sender: FDA-Public Use
  Company Number: US-JNJFOC-20040103838

PATIENT
  Age: 63 Year
  Sex: Female
  Weight: 52.6173 kg

DRUGS (7)
  1. REMICADE [Suspect]
     Indication: CROHN'S DISEASE
     Dosage: 5 MG/KG, INTRAVENOUS
     Route: 042
     Dates: start: 20030815
  2. REMICADE [Suspect]
     Indication: CROHN'S DISEASE
     Dosage: 5 MG/KG, INTRAVENOUS
     Route: 042
     Dates: start: 20031031
  3. REMICADE [Suspect]
     Indication: CROHN'S DISEASE
     Dosage: 5 MG/KG, INTRAVENOUS
     Route: 042
     Dates: start: 20031210
  4. ANTIBIOTICS (ANTIBIOTICS) [Concomitant]
  5. PREDNISONE [Concomitant]
  6. AZATHIOPRINE [Concomitant]
  7. CELLCEPT [Concomitant]

REACTIONS (9)
  - ABDOMINAL ABSCESS [None]
  - CELLULITIS [None]
  - COUGH [None]
  - DIZZINESS [None]
  - ENTEROCUTANEOUS FISTULA [None]
  - HYPERHIDROSIS [None]
  - NEUROPATHY PERIPHERAL [None]
  - RHINITIS [None]
  - SEPSIS [None]
